FAERS Safety Report 9699684 (Version 1)
Quarter: 2013Q4

REPORT INFORMATION
  Report Type: Spontaneous
  Country: US (occurrence: US)
  Receive Date: 20131120
  Receipt Date: 20131120
  Transmission Date: 20140711
  Serious: No
  Sender: FDA-Public Use
  Company Number: US-TEVA-373401USA

PATIENT
  Sex: Female
  Weight: 106.69 kg

DRUGS (1)
  1. PARAGARD 380A [Suspect]
     Indication: CONTRACEPTION
     Dates: start: 2006

REACTIONS (3)
  - Embedded device [Not Recovered/Not Resolved]
  - Pelvic pain [Unknown]
  - Menorrhagia [Unknown]
